FAERS Safety Report 5513578-1 (Version None)
Quarter: 2007Q4

REPORT INFORMATION
  Report Type: 
  Country: None (occurrence: None)
  Receive Date: 20071112
  Receipt Date: 20071109
  Transmission Date: 20080405
  Serious: No
  Sender: FDA-Public Use
  Company Number: US-BOEHRINGER INGELHEIM PHARMACEUTICALS, INC.-2007-BP-21905BP

PATIENT

DRUGS (1)
  1. MIRAPEX [Suspect]
     Indication: RESTLESS LEGS SYNDROME
     Route: 048

REACTIONS (4)
  - ABNORMAL DREAMS [None]
  - DIZZINESS [None]
  - DRUG INEFFECTIVE [None]
  - HALLUCINATION [None]
